FAERS Safety Report 14892102 (Version 2)
Quarter: 2018Q2

REPORT INFORMATION
  Report Type: Report from Study
  Country: US (occurrence: US)
  Receive Date: 20180514
  Receipt Date: 20180531
  Transmission Date: 20180711
  Serious: Yes (Life-Threatening, Hospitalization, Other)
  Sender: FDA-Public Use
  Company Number: US-TESARO, INC-US-2018TSO01535

PATIENT

DRUGS (6)
  1. PROMETHAZINE HCL [Concomitant]
     Active Substance: PROMETHAZINE HYDROCHLORIDE
     Indication: NAUSEA
     Dosage: INSERT 1 SUPPOSITORY RECTALLY EVERY 6 HOURS AS NEEDED
     Route: 054
     Dates: start: 20140224
  2. ZEJULA [Suspect]
     Active Substance: NIRAPARIB
     Dosage: 100 MG, QD
  3. PROMETHAZINE HCL [Concomitant]
     Active Substance: PROMETHAZINE HYDROCHLORIDE
     Indication: VOMITING
  4. ZEJULA [Suspect]
     Active Substance: NIRAPARIB
     Indication: OVARIAN CANCER
     Dosage: 300 MG, QD
     Route: 048
     Dates: start: 20180309, end: 20180330
  5. MOUTHWASHGUM [Concomitant]
     Indication: PRODUCT USED FOR UNKNOWN INDICATION
     Dosage: SWISH AND SPIT 5 ML, 30 MINUTES PRIOR TO MEALS AND BEFORE BED
     Dates: start: 20170901
  6. ONDANSETRON HCL [Concomitant]
     Active Substance: ONDANSETRON HYDROCHLORIDE
     Indication: NAUSEA
     Dosage: 1 DF, TID, PRN
     Dates: start: 20140224

REACTIONS (32)
  - Pleural effusion [Unknown]
  - Metastatic neoplasm [Unknown]
  - White blood cell count decreased [Recovered/Resolved]
  - Thrombophlebitis [Unknown]
  - Neutropenia [Recovered/Resolved]
  - Hypomagnesaemia [Unknown]
  - Blood creatinine increased [Unknown]
  - Haematocrit decreased [Unknown]
  - Carbohydrate antigen 125 increased [Unknown]
  - Drug intolerance [Recovered/Resolved]
  - Stomatitis [Unknown]
  - Nausea [Unknown]
  - Hypocholesterolaemia [Unknown]
  - Urine analysis abnormal [Unknown]
  - Ascites [Unknown]
  - Intentional product misuse [Unknown]
  - Dysgeusia [Unknown]
  - Fatigue [Unknown]
  - Haemoglobin decreased [Unknown]
  - Headache [Unknown]
  - Gingival bleeding [Recovered/Resolved]
  - Rectal haemorrhage [Recovered/Resolved]
  - Mammogram abnormal [Unknown]
  - Electrolyte imbalance [Unknown]
  - Abnormal faeces [Not Recovered/Not Resolved]
  - Tongue haemorrhage [Recovered/Resolved]
  - Thrombocytopenia [Recovered/Resolved]
  - Muscular weakness [Recovered/Resolved]
  - Myalgia [Unknown]
  - Anaemia [Unknown]
  - Mucosal inflammation [Unknown]
  - Red blood cell count decreased [Unknown]

NARRATIVE: CASE EVENT DATE: 20180330
